FAERS Safety Report 22287030 (Version 3)
Quarter: 2023Q4

REPORT INFORMATION
  Report Type: Report from Study
  Country: US (occurrence: US)
  Receive Date: 20230505
  Receipt Date: 20231103
  Transmission Date: 20240109
  Serious: Yes (Hospitalization)
  Sender: FDA-Public Use
  Company Number: US-JAZZ PHARMACEUTICALS-2023-US-009796

PATIENT
  Sex: Male
  Weight: 32.7 kg

DRUGS (2)
  1. EPIDIOLEX [Suspect]
     Active Substance: CANNABIDIOL
     Indication: Lennox-Gastaut syndrome
     Dosage: 360 MILLIGRAM, BID (3.6 MILLILITRE TWICE DAY)
     Route: 048
  2. EPIDIOLEX [Suspect]
     Active Substance: CANNABIDIOL
     Dosage: 3.6 MILLILITER, BID (G-TUBE)

REACTIONS (3)
  - Surgery [Unknown]
  - Post procedural complication [Unknown]
  - Medical procedure [Unknown]
